FAERS Safety Report 6491633-X (Version None)
Quarter: 2009Q4

REPORT INFORMATION
  Report Type: 
  Country: None (occurrence: None)
  Receive Date: 20091207
  Receipt Date: 20091119
  Transmission Date: 20100525
  Serious: Yes (Hospitalization)
  Sender: FDA-Public Use
  Company Number: 2009GR_BP3514

PATIENT
  Age: 51 Year
  Sex: Female
  Weight: 62 kg

DRUGS (1)
  1. TERBINAFINE                250 MG TABLET [Suspect]
     Indication: FUNGAL INFECTION
     Dosage: 250 MG (250 MG, 1 IN 1 D), ORAL
     Route: 048
     Dates: start: 20070101, end: 20080310

REACTIONS (4)
  - BUTTERFLY RASH [None]
  - RETINAL DETACHMENT [None]
  - VISION BLURRED [None]
  - VITREOUS FLOATERS [None]
